FAERS Safety Report 9459057 (Version 6)
Quarter: 2014Q2

REPORT INFORMATION
  Report Type: Spontaneous
  Country: US (occurrence: US)
  Receive Date: 20130814
  Receipt Date: 20140515
  Transmission Date: 20141212
  Serious: Yes (Hospitalization, Other)
  Sender: FDA-Public Use
  Company Number: US-009507513-1308USA003240

PATIENT
  Sex: Female
  Weight: 60.54 kg

DRUGS (8)
  1. FOSAMAX [Suspect]
     Indication: OSTEOPOROSIS
     Dosage: 70 MG, QW
     Route: 048
  2. FOSAMAX PLUS D [Suspect]
     Indication: OSTEOPOROSIS
     Dosage: 70 MG/ 2800 IU, QW
     Route: 048
     Dates: start: 20051227, end: 20080401
  3. ALENDRONATE SODIUM [Suspect]
     Indication: OSTEOPOROSIS
     Dosage: 70 MG, QW
     Route: 048
     Dates: start: 20080414, end: 20111006
  4. ARAVA [Concomitant]
     Indication: RHEUMATOID ARTHRITIS
     Dosage: 20 MG, UNK
     Dates: start: 2003
  5. DELTASONE [Concomitant]
     Indication: RHEUMATOID ARTHRITIS
     Dosage: 5 MG, PRN
     Dates: start: 2003
  6. DELTASONE [Concomitant]
     Dosage: 20 MG, QD
     Route: 048
  7. CALCIUM (UNSPECIFIED) [Concomitant]
     Indication: OSTEOPOROSIS
  8. VITAMIN D (UNSPECIFIED) [Concomitant]
     Indication: OSTEOPOROSIS

REACTIONS (11)
  - Intramedullary rod insertion [Unknown]
  - Femur fracture [Unknown]
  - Knee arthroplasty [Unknown]
  - Knee arthroplasty [Unknown]
  - Femur fracture [Recovering/Resolving]
  - Hypertension [Unknown]
  - Osteopenia [Unknown]
  - Osteoarthritis [Unknown]
  - Dermatitis [Unknown]
  - Spinal osteoarthritis [Unknown]
  - Renal cyst [Unknown]
